FAERS Safety Report 7907705-6 (Version None)
Quarter: 2011Q4

REPORT INFORMATION
  Report Type: 
  Country: None (occurrence: None)
  Receive Date: 20111110
  Receipt Date: 20111028
  Transmission Date: 20120403
  Serious: Yes (Life-Threatening, Other)
  Sender: FDA-Public Use
  Company Number: AU-ELI_LILLY_AND_COMPANY-AU201109008540

PATIENT
  Age: 49 Year
  Sex: Female

DRUGS (4)
  1. CYMBALTA [Suspect]
     Dosage: 30 MG, UNK
     Route: 048
     Dates: start: 20110810
  2. VALIUM [Concomitant]
  3. CYMBALTA [Suspect]
     Dosage: 60 MG, UNK
     Dates: end: 20110923
  4. DURAGESIC-100 [Concomitant]

REACTIONS (1)
  - HYPERSENSITIVITY [None]
